FAERS Safety Report 4890046-1 (Version None)
Quarter: 2006Q1

REPORT INFORMATION
  Report Type: 
  Country: None (occurrence: None)
  Receive Date: 20060120
  Receipt Date: 20060104
  Transmission Date: 20060701
  Serious: Yes (Other)
  Sender: FDA-Public Use
  Company Number: DSA_27629_2006

PATIENT
  Age: 58 Year
  Sex: Female

DRUGS (1)
  1. ENALAPRIL MALEATE [Suspect]
     Indication: HYPERTENSION
     Dosage: DF PO
     Route: 048

REACTIONS (2)
  - CARDIAC FAILURE [None]
  - PERIPHERAL VASCULAR DISORDER [None]
